FAERS Safety Report 8243488-0 (Version None)
Quarter: 2012Q1

REPORT INFORMATION
  Report Type: 
  Country: None (occurrence: None)
  Receive Date: 20120329
  Receipt Date: 20120323
  Transmission Date: 20120608
  Serious: Yes (Hospitalization)
  Sender: FDA-Public Use
  Company Number: SE-B.I. PHARMACEUTICALS,INC./RIDGEFIELD-2012-SW-00251SW

PATIENT
  Sex: Male

DRUGS (9)
  1. OXYCODONE HCL [Concomitant]
     Indication: PAIN
     Dosage: WHEN NEEDED
  2. CLOXACILLIN SODIUM [Concomitant]
     Indication: PROPHYLAXIS
  3. PRADAXA [Suspect]
     Indication: THROMBOSIS PROPHYLAXIS
     Dates: start: 20120208, end: 20120306
  4. ALVEDON [Concomitant]
     Indication: PAIN
     Dosage: 3990 MG
  5. FELODIPINE [Concomitant]
     Indication: BLOOD PRESSURE
     Dosage: 5 MG
  6. BUPRENORPHINE [Concomitant]
     Indication: PAIN
  7. DULPHALAC [Concomitant]
     Indication: GASTRIC DISORDER
  8. PRADAXA [Suspect]
     Indication: ORTHOPEDIC PROCEDURE
  9. INDURAL [Concomitant]
     Indication: HYPERTENSION
     Dosage: 40 MG

REACTIONS (4)
  - INFLUENZA [None]
  - DUODENAL ULCER [None]
  - VITAMIN B12 DECREASED [None]
  - HAEMOGLOBIN DECREASED [None]
